FAERS Safety Report 9998489 (Version 1)
Quarter: 2014Q1

REPORT INFORMATION
  Report Type: Report from Study
  Country: FR (occurrence: FR)
  Receive Date: 20140312
  Receipt Date: 20140312
  Transmission Date: 20141002
  Serious: Yes (Other)
  Sender: FDA-Public Use
  Company Number: FR-ROCHE-1357282

PATIENT
  Sex: Female

DRUGS (9)
  1. RITUXIMAB [Suspect]
     Indication: RHEUMATOID ARTHRITIS
     Route: 041
     Dates: start: 20080806, end: 20100503
  2. ARAVA [Suspect]
     Indication: PRODUCT USED FOR UNKNOWN INDICATION
     Route: 065
     Dates: end: 201301
  3. SOLU-MEDROL [Concomitant]
     Route: 065
  4. ORENCIA [Concomitant]
     Route: 065
     Dates: end: 201301
  5. CORTANCYL [Concomitant]
     Route: 065
  6. PARACETAMOL [Concomitant]
  7. ROACTEMRA [Concomitant]
     Route: 041
     Dates: start: 20100105
  8. ROACTEMRA [Concomitant]
     Route: 041
     Dates: end: 20110419
  9. ROACTEMRA [Concomitant]
     Route: 041
     Dates: start: 20101005

REACTIONS (12)
  - Biliary cirrhosis primary [Unknown]
  - Mouth ulceration [Recovered/Resolved]
  - Headache [Recovered/Resolved]
  - Nausea [Recovered/Resolved]
  - Infusion related reaction [Recovered/Resolved]
  - Haemorrhoids [Recovered/Resolved]
  - Pyrexia [Recovered/Resolved]
  - Diarrhoea [Recovered/Resolved]
  - Abdominal pain upper [Unknown]
  - Rash papular [Recovered/Resolved]
  - Gamma-glutamyltransferase increased [Recovered/Resolved]
  - Gastric ulcer [Not Recovered/Not Resolved]
